FAERS Safety Report 6679962-8 (Version None)
Quarter: 2010Q2

REPORT INFORMATION
  Report Type: 
  Country: None (occurrence: None)
  Receive Date: 20100409
  Receipt Date: 20100405
  Transmission Date: 20101027
  Serious: Yes (Other)
  Sender: FDA-Public Use
  Company Number: CIP10000754

PATIENT
  Sex: Female

DRUGS (4)
  1. ACTONEL [Suspect]
     Dosage: 150 MG ONCE MONTHLY, ORAL
     Route: 048
  2. ACTONEL [Suspect]
     Dosage: 35 MG ONCE WEEKLY, ORAL
     Route: 048
  3. CALCIUM+D (CALCIUM, ERGOCALCIFEROL) [Concomitant]
  4. HERBAL PREPARATION [Concomitant]

REACTIONS (3)
  - FOOT FRACTURE [None]
  - IMPAIRED HEALING [None]
  - TOOTHACHE [None]
